FAERS Safety Report 9149863 (Version 1)
Quarter: 2013Q1

REPORT INFORMATION
  Report Type: Spontaneous
  Country: US (occurrence: US)
  Receive Date: 20130308
  Receipt Date: 20130308
  Transmission Date: 20140127
  Serious: No
  Sender: FDA-Public Use
  Company Number: US-ENDO PHARMACEUTICALS INC.-OPCR20120887

PATIENT
  Sex: Male
  Weight: 59.47 kg

DRUGS (8)
  1. OPANA ER [Suspect]
     Indication: PAIN
     Route: 048
     Dates: start: 201204, end: 201205
  2. OPANA ER [Suspect]
     Indication: INTERVERTEBRAL DISC DEGENERATION
  3. OPANA ER [Suspect]
     Indication: OSTEOARTHRITIS
  4. OPANA ER [Suspect]
     Indication: POLYARTHRITIS
  5. OPANA ER [Concomitant]
     Indication: PAIN
     Dosage: UNKNOWN
     Route: 048
     Dates: end: 201204
  6. OPANA ER [Concomitant]
     Indication: INTERVERTEBRAL DISC DEGENERATION
  7. OPANA ER [Concomitant]
     Indication: OSTEOARTHRITIS
  8. OPANA ER [Concomitant]
     Indication: POLYARTHRITIS

REACTIONS (4)
  - Medication residue present [Recovered/Resolved]
  - Urticaria [Unknown]
  - Abdominal pain upper [Unknown]
  - Drug effect decreased [Recovered/Resolved]
